FAERS Safety Report 5239912-8 (Version None)
Quarter: 2007Q1

REPORT INFORMATION
  Report Type: 
  Country: None (occurrence: None)
  Receive Date: 20070216
  Receipt Date: 20070207
  Transmission Date: 20070707
  Serious: Yes (Other)
  Sender: FDA-Public Use
  Company Number: GB-PFIZER INC-2006152381

PATIENT
  Age: 27 Year
  Sex: Female
  Weight: 64 kg

DRUGS (1)
  1. CABASER [Suspect]
     Indication: PROLACTINOMA
     Route: 048

REACTIONS (3)
  - BREAST ATROPHY [None]
  - EMOTIONAL DISTRESS [None]
  - THINKING ABNORMAL [None]
